FAERS Safety Report 5448808-8 (Version None)
Quarter: 2007Q3

REPORT INFORMATION
  Report Type: 
  Country: None (occurrence: None)
  Receive Date: 20070911
  Receipt Date: 20070625
  Transmission Date: 20080115
  Serious: No
  Sender: FDA-Public Use
  Company Number: US-BRISTOL-MYERS SQUIBB COMPANY-13824628

PATIENT
  Age: 63 Year
  Sex: Female
  Weight: 54 kg

DRUGS (3)
  1. EMSAM [Suspect]
     Indication: DEPRESSION
     Route: 062
  2. LAMICTAL [Concomitant]
  3. KLONOPIN [Concomitant]

REACTIONS (2)
  - ANXIETY [None]
  - MEDICATION ERROR [None]
